FAERS Safety Report 5269723-9 (Version None)
Quarter: 2007Q1

REPORT INFORMATION
  Report Type: 
  Country: None (occurrence: None)
  Receive Date: 20070320
  Receipt Date: 20070305
  Transmission Date: 20070707
  Serious: Yes (Hospitalization)
  Sender: FDA-Public Use
  Company Number: NL-ROCHE-481272

PATIENT
  Age: 49 Year
  Sex: Male

DRUGS (5)
  1. PEG-INTERFERON ALFA 2A (RO 25-8310) [Suspect]
     Route: 065
     Dates: start: 20070105, end: 20070131
  2. RIBAVIRIN [Suspect]
     Route: 065
     Dates: start: 20070105, end: 20070131
  3. BLINDED ESCITALOPRAM [Suspect]
     Route: 048
     Dates: start: 20070105, end: 20070202
  4. METHADON [Concomitant]
     Dates: start: 20040615
  5. VALIUM [Concomitant]
     Dates: start: 20000615

REACTIONS (2)
  - DEEP VEIN THROMBOSIS [None]
  - PULMONARY EMBOLISM [None]
